FAERS Safety Report 19034158 (Version 1)
Quarter: 2021Q1

REPORT INFORMATION
  Report Type: Spontaneous
  Country: CA (occurrence: CA)
  Receive Date: 20210319
  Receipt Date: 20210319
  Transmission Date: 20210420
  Serious: Yes (Other)
  Sender: FDA-Public Use
  Company Number: CA-TEVA-2021-CA-1890295

PATIENT
  Sex: Male

DRUGS (1)
  1. TETRACYCLINE [Suspect]
     Active Substance: TETRACYCLINE
     Indication: ACNE
     Route: 048

REACTIONS (11)
  - Emotional distress [Not Recovered/Not Resolved]
  - Fatigue [Not Recovered/Not Resolved]
  - Palpitations [Not Recovered/Not Resolved]
  - Mental disorder [Not Recovered/Not Resolved]
  - Headache [Not Recovered/Not Resolved]
  - Loss of personal independence in daily activities [Not Recovered/Not Resolved]
  - Renal impairment [Not Recovered/Not Resolved]
  - Dizziness [Not Recovered/Not Resolved]
  - Manufacturing issue [Unknown]
  - Tachycardia [Not Recovered/Not Resolved]
  - Acute kidney injury [Not Recovered/Not Resolved]
